FAERS Safety Report 24996823 (Version 1)
Quarter: 2025Q1

REPORT INFORMATION
  Report Type: Spontaneous
  Country: CN (occurrence: CN)
  Receive Date: 20250221
  Receipt Date: 20250221
  Transmission Date: 20250408
  Serious: Yes (Life-Threatening, Hospitalization)
  Sender: NOVARTIS
  Company Number: CN-002147023-NVSC2025CN030185

PATIENT
  Age: 75 Year
  Sex: Female

DRUGS (2)
  1. KISQALI [Suspect]
     Active Substance: RIBOCICLIB
     Indication: Hormone receptor positive breast cancer
     Dosage: 600 MG, QD
     Route: 048
     Dates: start: 20250123, end: 20250207
  2. LETROZOLE [Concomitant]
     Active Substance: LETROZOLE
     Indication: Hormone receptor positive breast cancer
     Dosage: 2.5 MG, QD
     Route: 048
     Dates: start: 20250123, end: 20250207

REACTIONS (2)
  - Myelosuppression [Recovering/Resolving]
  - Full blood count decreased [Unknown]

NARRATIVE: CASE EVENT DATE: 20250207
